FAERS Safety Report 7679738-9 (Version None)
Quarter: 2011Q3

REPORT INFORMATION
  Report Type: 
  Country: None (occurrence: None)
  Receive Date: 20110809
  Receipt Date: 20110725
  Transmission Date: 20111222
  Serious: Yes (Other)
  Sender: FDA-Public Use
  Company Number: TPA2011A04446

PATIENT
  Age: 66 Year
  Sex: Male

DRUGS (3)
  1. ACTOS [Suspect]
     Indication: DIABETES MELLITUS
     Dosage: 30 MG, 1 IN 1 D, PER ORAL SEVERAL YEARS
     Route: 048
  2. INSULIN (INSULIN) [Concomitant]
  3. UNKNOWN MEDICATION FOR HYPERTENSION (ANTIHYPERTENSIVES) [Concomitant]

REACTIONS (1)
  - BLADDER CANCER [None]
